FAERS Safety Report 16501151 (Version 3)
Quarter: 2019Q3

REPORT INFORMATION
  Report Type: Spontaneous
  Country: CZ (occurrence: CZ)
  Receive Date: 20190701
  Receipt Date: 20190904
  Transmission Date: 20191004
  Serious: Yes (Hospitalization, Other)
  Sender: FDA-Public Use
  Company Number: CZ-SA-2019SA174081

PATIENT
  Sex: Male

DRUGS (5)
  1. DHC [Concomitant]
     Active Substance: DIHYDROCODEINE BITARTRATE
     Dosage: 60 MG, PRN
  2. LEMTRADA [Suspect]
     Active Substance: ALEMTUZUMAB
     Indication: MULTIPLE SCLEROSIS
     Dosage: UNK UNK, UNK
     Route: 041
     Dates: start: 20181029, end: 20181102
  3. LYRICA [Concomitant]
     Active Substance: PREGABALIN
     Dosage: 75 MG, BID
  4. PANTOPRAZOLE [Concomitant]
     Active Substance: PANTOPRAZOLE
     Dosage: 40 MG, PRN
  5. VIGANTOL [COLECALCIFEROL] [Concomitant]
     Active Substance: CHOLECALCIFEROL
     Dosage: 20 GTT DROPS, QW

REACTIONS (8)
  - Neuralgia [Recovering/Resolving]
  - Gait disturbance [Unknown]
  - Multiple sclerosis relapse [Not Recovered/Not Resolved]
  - Paraparesis [Unknown]
  - Hyperaesthesia [Unknown]
  - Lumbar spinal stenosis [Unknown]
  - Papillary thyroid cancer [Recovered/Resolved]
  - Expanded disability status scale score increased [Not Recovered/Not Resolved]

NARRATIVE: CASE EVENT DATE: 201901
